FAERS Safety Report 5567287-3 (Version None)
Quarter: 2007Q4

REPORT INFORMATION
  Report Type: 
  Country: None (occurrence: None)
  Receive Date: 20071219
  Receipt Date: 20070404
  Transmission Date: 20080405
  Serious: No
  Sender: FDA-Public Use
  Company Number: US-ABBOTT-07P-163-0364115-00

PATIENT
  Sex: Female
  Weight: 61.4 kg

DRUGS (5)
  1. DILAUDID [Suspect]
     Indication: DRUG USE FOR UNKNOWN INDICATION
  2. FENTANYL CITRATE [Suspect]
     Indication: BONE PAIN
     Route: 002
     Dates: start: 20020101
  3. AVINZA [Concomitant]
     Indication: DRUG USE FOR UNKNOWN INDICATION
     Dates: start: 20040101
  4. DIAZEPAM [Concomitant]
     Indication: DRUG USE FOR UNKNOWN INDICATION
     Dates: start: 20020101
  5. OBETROL [Concomitant]
     Indication: DRUG USE FOR UNKNOWN INDICATION
     Dates: start: 20030101

REACTIONS (3)
  - DENTAL CARIES [None]
  - FATIGUE [None]
  - FEELING ABNORMAL [None]
